FAERS Safety Report 8517870-8 (Version None)
Quarter: 2012Q3

REPORT INFORMATION
  Report Type: 
  Country: None (occurrence: None)
  Receive Date: 20120718
  Receipt Date: 20110624
  Transmission Date: 20120928
  Serious: No
  Sender: FDA-Public Use
  Company Number: US-BRISTOL-MYERS SQUIBB COMPANY-15853526

PATIENT
  Age: 87 Year
  Sex: Male
  Weight: 75 kg

DRUGS (1)
  1. COUMADIN [Suspect]
     Dosage: AND ALSO 10MG
     Dates: start: 20110201

REACTIONS (1)
  - PRURITUS GENERALISED [None]
